FAERS Safety Report 12985319 (Version 2)
Quarter: 2016Q4

REPORT INFORMATION
  Report Type: Spontaneous
  Country: US (occurrence: US)
  Receive Date: 20161130
  Receipt Date: 20161202
  Transmission Date: 20170207
  Serious: No
  Sender: FDA-Public Use
  Company Number: US-AMGEN-USASP2016165795

PATIENT
  Age: 80 Year
  Sex: Female

DRUGS (1)
  1. ENBREL [Suspect]
     Active Substance: ETANERCEPT
     Indication: RHEUMATOID ARTHRITIS
     Dosage: 50 MG, QWK
     Route: 058

REACTIONS (7)
  - Respiratory disorder [Unknown]
  - Respiratory tract congestion [Unknown]
  - Injury associated with device [Unknown]
  - Feeling abnormal [Unknown]
  - Productive cough [Unknown]
  - Underdose [Unknown]
  - Fatigue [Unknown]

NARRATIVE: CASE EVENT DATE: 201611
